FAERS Safety Report 8888906 (Version 2)
Quarter: 2012Q4

REPORT INFORMATION
  Report Type: 
  Country: US (occurrence: US)
  Receive Date: 20121106
  Receipt Date: 20121112
  Transmission Date: 20130627
  Serious: Yes (Death)
  Sender: FDA-Public Use
  Company Number: US-AMGEN-USASP2012070102

PATIENT
  Age: 41 Year
  Sex: Female

DRUGS (6)
  1. NEULASTA [Suspect]
     Indication: PRODUCT USED FOR UNKNOWN INDICATION
     Dosage: UNK UNK, q2wk
     Dates: start: 20120718, end: 20120927
  2. VICODIN [Concomitant]
  3. ULTRAM [Concomitant]
  4. PERCOCET                           /00446701/ [Concomitant]
  5. MS CONTIN [Concomitant]
  6. LUNESTA [Concomitant]

REACTIONS (1)
  - Breast cancer metastatic [Fatal]
